FAERS Safety Report 7061596-7 (Version None)
Quarter: 2010Q4

REPORT INFORMATION
  Report Type: 
  Country: None (occurrence: None)
  Receive Date: 20101026
  Receipt Date: 20101019
  Transmission Date: 20110411
  Serious: Yes (Other)
  Sender: FDA-Public Use
  Company Number: US-SANOFI-AVENTIS-2010SA064626

PATIENT
  Age: 79 Year
  Sex: Female

DRUGS (6)
  1. PLAVIX [Suspect]
     Dates: start: 20030101, end: 20100904
  2. PLAVIX [Suspect]
     Dates: start: 20100904
  3. VARENICLINE [Suspect]
     Route: 048
     Dates: start: 20090101, end: 20101006
  4. VYTORIN [Suspect]
     Route: 048
     Dates: start: 20030101
  5. WARFARIN SODIUM [Concomitant]
  6. ALL OTHER THERAPEUTIC PRODUCTS [Concomitant]

REACTIONS (10)
  - CONFUSIONAL STATE [None]
  - CRYING [None]
  - DRUG ADMINISTRATION ERROR [None]
  - EMOTIONAL DISORDER [None]
  - FEAR [None]
  - LUNG NEOPLASM MALIGNANT [None]
  - MALAISE [None]
  - MEMORY IMPAIRMENT [None]
  - NAUSEA [None]
  - SCREAMING [None]
